FAERS Safety Report 5637291-5 (Version None)
Quarter: 2008Q1

REPORT INFORMATION
  Report Type: 
  Country: None (occurrence: None)
  Receive Date: 20080225
  Receipt Date: 20080214
  Transmission Date: 20080703
  Serious: Yes (Hospitalization)
  Sender: FDA-Public Use
  Company Number: KR-AVENTIS-200811152GDDC

PATIENT
  Age: 49 Year
  Sex: Male
  Weight: 89 kg

DRUGS (5)
  1. DOCETAXEL [Suspect]
     Indication: NON-SMALL CELL LUNG CANCER
     Dosage: DOSE: UNK
     Route: 042
     Dates: start: 20071018, end: 20071018
  2. CISPLATIN [Suspect]
     Indication: NON-SMALL CELL LUNG CANCER
     Route: 042
     Dates: start: 20070910, end: 20071018
  3. RADIATION THERAPY [Suspect]
     Indication: NON-SMALL CELL LUNG CANCER
     Dates: start: 20070910, end: 20071016
  4. RADIATION THERAPY [Suspect]
     Dates: start: 20071017, end: 20071026
  5. ACETYLCYSTEINE [Concomitant]
     Route: 042
     Dates: start: 20080129

REACTIONS (1)
  - OESOPHAGEAL STENOSIS [None]
